FAERS Safety Report 7558408-1 (Version None)
Quarter: 2011Q2

REPORT INFORMATION
  Report Type: 
  Country: None (occurrence: None)
  Receive Date: 20110620
  Receipt Date: 20110608
  Transmission Date: 20111010
  Serious: Yes (Hospitalization, Other)
  Sender: FDA-Public Use
  Company Number: PHEH2006US04720

PATIENT
  Sex: Male

DRUGS (68)
  1. CLARITIN-D 24 HOUR [Concomitant]
  2. ZITHROMAX [Concomitant]
  3. NEURONTIN [Concomitant]
  4. NEXIUM [Concomitant]
  5. PROMETHAZINE [Concomitant]
     Dosage: 25 MG, PRN
     Route: 048
     Dates: start: 20090430
  6. LEVAQUIN [Concomitant]
  7. FLEXERIL [Concomitant]
  8. NORVASC [Concomitant]
  9. AREDIA [Suspect]
     Dosage: 90 MG, UNK
     Route: 042
  10. CHLORHEXIDINE GLUCONATE [Concomitant]
  11. PRILOSEC [Concomitant]
  12. LOMOTIL [Concomitant]
  13. AMBIEN [Concomitant]
  14. PERCOCET [Concomitant]
  15. DIFLUCAN [Concomitant]
  16. CIPRO [Concomitant]
  17. ZELNORM                                 /CAN/ [Concomitant]
  18. CATAPRES [Concomitant]
     Dosage: 1 DF, QW
     Route: 062
     Dates: start: 20090416
  19. ALBUTEROL [Concomitant]
     Dosage: 1 VIAL 4XDAY
     Dates: start: 20090520
  20. REVLIMID [Concomitant]
  21. VALIUM [Concomitant]
  22. WARFARIN SODIUM [Concomitant]
     Dosage: 1 MG, QD
  23. LISINOPRIL [Concomitant]
  24. AUGMENTIN '125' [Concomitant]
  25. OXYCODONE HCL AND ACETAMINOPHEN [Concomitant]
  26. ERYTHROMYCIN [Concomitant]
  27. NORVASC [Concomitant]
     Dosage: 5 MG, QD
     Route: 048
  28. REQUIP [Concomitant]
  29. ZINACEF                                 /UNK/ [Concomitant]
  30. NORTRIPTYLINE [Concomitant]
  31. ACCUPRIL [Concomitant]
  32. AXID [Concomitant]
  33. CLINDAMYCIN [Concomitant]
     Dosage: 150 MG, Q6H
  34. PREVACID [Concomitant]
  35. HYDROCODONE [Concomitant]
  36. DECADRON [Concomitant]
  37. ZYRTEC [Concomitant]
  38. MEDROL [Concomitant]
  39. ALPRAZOLAM [Concomitant]
  40. LORCET-HD [Concomitant]
  41. ZOMETA [Suspect]
     Dosage: 4 MG, UNK
     Route: 042
  42. MEGACE [Concomitant]
  43. LEXAPRO [Concomitant]
  44. REGLAN [Concomitant]
  45. AMOXICILLIN [Concomitant]
  46. FENTANYL-100 [Concomitant]
  47. OXYCODONE HCL [Concomitant]
  48. PREDNISONE [Concomitant]
  49. DIPRIVAN [Concomitant]
  50. ACYCLOVIR [Concomitant]
  51. LYRICA [Concomitant]
  52. CARBOPLATIN [Concomitant]
  53. LIDOCAINE HYDROCHLORIDE [Concomitant]
  54. FAMVIR                                  /NET/ [Concomitant]
  55. ZOVIRAX [Concomitant]
  56. PROTONIX [Concomitant]
  57. ANAPROX [Concomitant]
  58. KLOR-CON [Concomitant]
  59. VANCOMYCIN [Concomitant]
  60. MORPHINE [Concomitant]
  61. ALEVE [Concomitant]
     Dosage: 220 MG, QD
  62. XANAX [Concomitant]
  63. VERSED [Concomitant]
  64. DEMEROL [Concomitant]
  65. CYMBALTA [Concomitant]
     Dosage: 30 MG, BID
     Route: 048
     Dates: start: 20090417
  66. ONDANSETRON [Concomitant]
     Dosage: 1 DF, PRN
     Route: 048
     Dates: start: 20090427
  67. CYCLOBENZAPRINE [Concomitant]
  68. TAXOL [Concomitant]

REACTIONS (76)
  - MOUTH ULCERATION [None]
  - CONSTIPATION [None]
  - THROMBOCYTOPENIA [None]
  - HYPOXIA [None]
  - ACUTE LEUKAEMIA [None]
  - HELICOBACTER TEST POSITIVE [None]
  - PANCREATIC CARCINOMA [None]
  - SQUAMOUS CELL CARCINOMA [None]
  - OESOPHAGITIS ULCERATIVE [None]
  - PANCYTOPENIA [None]
  - INTERVERTEBRAL DISC PROTRUSION [None]
  - INJURY [None]
  - ALTERED STATE OF CONSCIOUSNESS [None]
  - RHINORRHOEA [None]
  - INTERVERTEBRAL DISC SPACE NARROWING [None]
  - ABDOMINAL WOUND DEHISCENCE [None]
  - PERIPHERAL NERVE INJURY [None]
  - LUNG NEOPLASM MALIGNANT [None]
  - PAIN [None]
  - ARTHRALGIA [None]
  - SINUSITIS [None]
  - NAUSEA [None]
  - NEOPLASM MALIGNANT [None]
  - METASTASES TO BONE [None]
  - HYPOAESTHESIA [None]
  - CERVICAL SPINAL STENOSIS [None]
  - GASTRIC CANCER RECURRENT [None]
  - IMPAIRED GASTRIC EMPTYING [None]
  - GASTROOESOPHAGEAL REFLUX DISEASE [None]
  - OSTEONECROSIS OF JAW [None]
  - COLON ADENOMA [None]
  - RESPIRATORY FAILURE [None]
  - BRONCHITIS [None]
  - AORTIC ANEURYSM [None]
  - ATELECTASIS [None]
  - DEVICE RELATED INFECTION [None]
  - PECTUS EXCAVATUM [None]
  - NEUROPATHY PERIPHERAL [None]
  - PAIN IN JAW [None]
  - RASH ERYTHEMATOUS [None]
  - HAEMORRHOIDS [None]
  - RECTAL HAEMORRHAGE [None]
  - DYSPHAGIA [None]
  - LYMPHOMA [None]
  - FOOT FRACTURE [None]
  - SINUS BRADYCARDIA [None]
  - RESTLESS LEGS SYNDROME [None]
  - OSTEOARTHRITIS [None]
  - GASTRIC ULCER [None]
  - OBSTRUCTION GASTRIC [None]
  - DECREASED APPETITE [None]
  - DEPRESSION [None]
  - ANAEMIA [None]
  - CHRONIC OBSTRUCTIVE PULMONARY DISEASE [None]
  - GINGIVAL PAIN [None]
  - FATIGUE [None]
  - MALAISE [None]
  - MUSCULAR WEAKNESS [None]
  - LACERATION [None]
  - HIATUS HERNIA [None]
  - HYPOTENSION [None]
  - EMOTIONAL DISTRESS [None]
  - HAEMOPHILUS BACTERAEMIA [None]
  - MALNUTRITION [None]
  - ANXIETY [None]
  - PNEUMONIA [None]
  - LYMPHATIC SYSTEM NEOPLASM [None]
  - METASTASES TO PLEURA [None]
  - SCROTAL CYST [None]
  - WEIGHT DECREASED [None]
  - ABDOMINAL PAIN [None]
  - PARAESTHESIA [None]
  - VOMITING [None]
  - NEUTROPENIA [None]
  - SCOLIOSIS [None]
  - SINUS TACHYCARDIA [None]
